FAERS Safety Report 7215461-2 (Version None)
Quarter: 2011Q1

REPORT INFORMATION
  Report Type: 
  Country: None (occurrence: None)
  Receive Date: 20110107
  Receipt Date: 20101221
  Transmission Date: 20110831
  Serious: Yes (Death, Hospitalization, Congenital Anomaly)
  Sender: FDA-Public Use
  Company Number: A0681119A

PATIENT
  Sex: Male
  Weight: 2.2 kg

DRUGS (3)
  1. PAROXETINE HYDROCHLORIDE [Suspect]
     Indication: DEPRESSION
     Dosage: 20MG PER DAY
     Dates: start: 20051222, end: 20060801
  2. PAXIL [Suspect]
     Indication: DEPRESSION
     Dosage: 20MG PER DAY
     Dates: start: 20060501, end: 20061001
  3. PRENATAL VITAMINS [Concomitant]

REACTIONS (4)
  - PREMATURE BABY [None]
  - DRUG EXPOSURE DURING PREGNANCY [None]
  - HAEMORRHAGE INTRACRANIAL [None]
  - MULTIPLE CONGENITAL ABNORMALITIES [None]
